FAERS Safety Report 9193311 (Version 1)
Quarter: 2013Q1

REPORT INFORMATION
  Report Type: Spontaneous
  Country: US (occurrence: None)
  Receive Date: 20130325
  Receipt Date: 20130325
  Transmission Date: 20140127
  Serious: Yes (Other)
  Sender: FDA-Public Use
  Company Number: None

PATIENT
  Age: 69 Year
  Sex: Female
  Weight: 66.23 kg

DRUGS (1)
  1. HYDROXYCHLOROQUINE [Suspect]
     Indication: RHEUMATOID ARTHRITIS
     Dosage: 1 TABLET TWICE A DAY PO
     Route: 048
     Dates: start: 20120913, end: 20130223

REACTIONS (6)
  - Muscle disorder [None]
  - Muscular weakness [None]
  - Alopecia [None]
  - Eye haemorrhage [None]
  - Contusion [None]
  - Pain [None]
